FAERS Safety Report 14837661 (Version 2)
Quarter: 2018Q2

REPORT INFORMATION
  Report Type: Spontaneous
  Country: US (occurrence: US)
  Receive Date: 20180502
  Receipt Date: 20180528
  Transmission Date: 20180711
  Serious: Yes (Hospitalization)
  Sender: FDA-Public Use
  Company Number: US-ASTRAZENECA-2018SE56143

PATIENT
  Age: 930 Month
  Sex: Female
  Weight: 71.2 kg

DRUGS (6)
  1. NEBULIZER [Concomitant]
     Active Substance: DEVICE
     Indication: DYSPNOEA
     Dosage: AS REQUIRED
     Dates: start: 201712
  2. NEBULIZER [Concomitant]
     Active Substance: DEVICE
     Indication: MULTIPLE ALLERGIES
     Dosage: AS REQUIRED
     Dates: start: 201712
  3. NEBULIZER [Concomitant]
     Active Substance: DEVICE
     Indication: CHRONIC OBSTRUCTIVE PULMONARY DISEASE
     Dosage: AS REQUIRED
     Dates: start: 201712
  4. NEBULIZER [Concomitant]
     Active Substance: DEVICE
     Indication: PROPHYLAXIS
     Dosage: AS REQUIRED
     Dates: start: 201712
  5. TUDORZA PRESSAIR [Suspect]
     Active Substance: ACLIDINIUM BROMIDE
     Indication: CHRONIC OBSTRUCTIVE PULMONARY DISEASE
     Route: 055
     Dates: start: 201705
  6. SYMBICORT [Suspect]
     Active Substance: BUDESONIDE\FORMOTEROL FUMARATE DIHYDRATE
     Indication: CHRONIC OBSTRUCTIVE PULMONARY DISEASE
     Dosage: TWO TIMES A DAY
     Route: 055

REACTIONS (5)
  - Intentional device misuse [Not Recovered/Not Resolved]
  - Glaucoma [Unknown]
  - Diverticulitis [Recovered/Resolved]
  - Drug dose omission [Not Recovered/Not Resolved]
  - Product quality issue [Unknown]

NARRATIVE: CASE EVENT DATE: 201804
